FAERS Safety Report 14364550 (Version 1)
Quarter: 2018Q1

REPORT INFORMATION
  Report Type: Spontaneous
  Country: US (occurrence: US)
  Receive Date: 20180106
  Receipt Date: 20180106
  Transmission Date: 20180509
  Serious: Yes (Death)
  Sender: FDA-Public Use
  Company Number: None

PATIENT
  Sex: Female
  Weight: 8.4 kg

DRUGS (1)
  1. MUCOMYST [Suspect]
     Active Substance: ACETYLCYSTEINE
     Indication: DRUG THERAPY

REACTIONS (5)
  - Oxygen saturation decreased [None]
  - Respiratory syncytial virus infection [None]
  - Cardiac disorder [None]
  - Endotracheal intubation [None]
  - Bronchospasm [None]

NARRATIVE: CASE EVENT DATE: 20171229
